FAERS Safety Report 12995151 (Version 2)
Quarter: 2018Q4

REPORT INFORMATION
  Report Type: Spontaneous
  Country: US (occurrence: US)
  Receive Date: 20161202
  Receipt Date: 20181031
  Transmission Date: 20190204
  Serious: Yes (Hospitalization)
  Sender: FDA-Public Use
  Company Number: US-SA-2016SA216135

PATIENT
  Age: 46 Year
  Sex: Female

DRUGS (4)
  1. CYCLOPHOSPHAMIDE. [Suspect]
     Active Substance: CYCLOPHOSPHAMIDE
     Indication: INVASIVE DUCTAL BREAST CARCINOMA
     Dosage: 600 MG/M2,UNK
     Route: 065
  2. ARIMIDEX [Concomitant]
     Active Substance: ANASTROZOLE
     Indication: INVASIVE DUCTAL BREAST CARCINOMA
     Dosage: 1 MG,QD
  3. DOCETAXEL. [Suspect]
     Active Substance: DOCETAXEL
     Indication: INVASIVE DUCTAL BREAST CARCINOMA
     Dosage: 75 MG/M2,UNK
     Route: 065
  4. LORATADINE. [Concomitant]
     Active Substance: LORATADINE
     Dosage: 10 MG,QD
     Route: 048

REACTIONS (4)
  - Facial pain [Recovered/Resolved]
  - Face oedema [Recovered/Resolved]
  - Radiation skin injury [Recovered/Resolved]
  - Erythema [Recovered/Resolved]
